FAERS Safety Report 4648061-9 (Version None)
Quarter: 2005Q2

REPORT INFORMATION
  Report Type: 
  Country: None (occurrence: None)
  Receive Date: 20050331
  Receipt Date: 20041220
  Transmission Date: 20051028
  Serious: No
  Sender: FDA-Public Use
  Company Number: 04P-163-0284004-00

PATIENT
  Age: 69 Year
  Sex: Female
  Weight: 88.4514 kg

DRUGS (25)
  1. HUMIRA [Suspect]
     Indication: RHEUMATOID ARTHRITIS
     Dosage: 40 MG, 1 IN 2 WK, SUBCUTANEOUS
     Route: 058
     Dates: start: 20040601
  2. METHOTREXATE SODIUM [Concomitant]
  3. ALLERGY SHOTS [Concomitant]
  4. CETRIZINE HYDROCHLORIDE [Concomitant]
  5. CO-DIOVAN [Concomitant]
  6. FOLIC ACID [Concomitant]
  7. POTASSIUM CHLORIDE [Concomitant]
  8. ATORVASTATIN CALCIUM [Concomitant]
  9. GABAPENTIN [Concomitant]
  10. CYCLOBENZAPRINE HYDROCHLORIDE [Concomitant]
  11. EFFEXOR XR [Concomitant]
  12. RISEDRONATE SODIUM [Concomitant]
  13. OXYBUTYNIN HYDROCHLORIDE [Concomitant]
  14. MULTI-VITAMINS [Concomitant]
  15. ACETYLSALICYLIC ACID [Concomitant]
  16. CALCIUM GLUCONATE [Concomitant]
  17. CITRACEL+VITAMIN D [Concomitant]
  18. ICAPS [Concomitant]
  19. ASTELIN SPRAY [Concomitant]
  20. FLONASE [Concomitant]
  21. COENZYME Q10 [Concomitant]
  22. ZEITA [Concomitant]
  23. DIABETES MEDICATIONS [Concomitant]
  24. TRAMADOL HCL [Concomitant]
  25. PARACETAMOL [Concomitant]

REACTIONS (1)
  - WHITE BLOOD CELL COUNT DECREASED [None]
